FAERS Safety Report 25416066 (Version 3)
Quarter: 2025Q3

REPORT INFORMATION
  Report Type: Report from Study
  Country: US (occurrence: US)
  Receive Date: 20250610
  Receipt Date: 20250828
  Transmission Date: 20251021
  Serious: No
  Sender: SUNOVION
  Company Number: US-SUMITOMO PHARMA SWITZERLAND GMBH-2025SPA006874

PATIENT
  Age: 80 Year
  Sex: Male

DRUGS (19)
  1. ORGOVYX [Suspect]
     Active Substance: RELUGOLIX
     Indication: Prostate cancer
     Dosage: 360 MG, SINGLE
     Route: 048
     Dates: start: 2023
  2. ORGOVYX [Suspect]
     Active Substance: RELUGOLIX
     Dosage: 120 MG, QD
     Route: 048
     Dates: start: 2023
  3. ORGOVYX [Suspect]
     Active Substance: RELUGOLIX
     Dosage: UNK, QOD
     Route: 048
  4. ASPIRIN [Concomitant]
     Active Substance: ASPIRIN
  5. CALCIUM\VITAMIN D [Concomitant]
     Active Substance: CALCIUM\VITAMIN D
  6. CITALOPRAM [Concomitant]
     Active Substance: CITALOPRAM
  7. DILTIAZEM HYDROCHLORIDE [Concomitant]
     Active Substance: DILTIAZEM HYDROCHLORIDE
  8. VITAMIN D3 [Concomitant]
     Active Substance: CHOLECALCIFEROL
  9. HYDROCHLOROTHIAZIDE [Concomitant]
     Active Substance: HYDROCHLOROTHIAZIDE
  10. LOSARTAN [Concomitant]
     Active Substance: LOSARTAN
  11. MAGNESIUM MALATE [Concomitant]
     Active Substance: MAGNESIUM MALATE
  12. POTASSIUM CITRATE [Concomitant]
     Active Substance: POTASSIUM CITRATE
  13. TADALAFIL [Concomitant]
     Active Substance: TADALAFIL
  14. TYLENOL [Concomitant]
     Active Substance: ACETAMINOPHEN
  15. XTANDI [Concomitant]
     Active Substance: ENZALUTAMIDE
  16. ZYRTEC [Concomitant]
     Active Substance: CETIRIZINE HYDROCHLORIDE
  17. ASPIRIN [Concomitant]
     Active Substance: ASPIRIN
  18. BACLOFEN [Concomitant]
     Active Substance: BACLOFEN
  19. PRAVASTATIN [Concomitant]
     Active Substance: PRAVASTATIN

REACTIONS (5)
  - COVID-19 [Unknown]
  - Asthenia [Unknown]
  - Fatigue [Unknown]
  - Product supply issue [Unknown]
  - Inappropriate schedule of product administration [Unknown]
